FAERS Safety Report 10133577 (Version 4)
Quarter: 2014Q3

REPORT INFORMATION
  Report Type: Spontaneous
  Country: US (occurrence: US)
  Receive Date: 20140428
  Receipt Date: 20140919
  Transmission Date: 20150326
  Serious: Yes (Hospitalization)
  Sender: FDA-Public Use
  Company Number: US-GLAXOSMITHKLINE-A1070887A

PATIENT
  Age: 76 Year
  Sex: Male
  Weight: 69.5 kg

DRUGS (15)
  1. LISINOPRIL. [Concomitant]
     Active Substance: LISINOPRIL
  2. FERROUS SULFATE [Concomitant]
     Active Substance: FERROUS SULFATE\FERROUS SULFATE, DRIED
  3. SODIUM BICARBONATE. [Concomitant]
     Active Substance: SODIUM BICARBONATE
  4. MIRTAZAPINE. [Concomitant]
     Active Substance: MIRTAZAPINE
  5. HYDROCODONE [Concomitant]
     Active Substance: HYDROCODONE
  6. MELPHALAN [Suspect]
     Active Substance: MELPHALAN
     Indication: PLASMA CELL MYELOMA
     Dosage: 10MG PER DAY
     Route: 048
     Dates: start: 20140123, end: 20140227
  7. ROBAXIN [Concomitant]
     Active Substance: METHOCARBAMOL
  8. LISINOPRIL-HYDROCHLOROTHIAZIDE [Concomitant]
     Active Substance: HYDROCHLOROTHIAZIDE\LISINOPRIL
  9. ASPIRIN. [Concomitant]
     Active Substance: ASPIRIN
  10. HYDROCODONE, ACETAMINOPHEN [Concomitant]
     Active Substance: ACETAMINOPHEN\HYDROCODONE BITARTRATE
  11. POMALIDOMIDE [Concomitant]
     Active Substance: POMALIDOMIDE
  12. NICOTINE TRANSDERMAL SYSTEM [Concomitant]
     Active Substance: NICOTINE
  13. POMALIDOMIDE [Concomitant]
     Active Substance: POMALIDOMIDE
  14. PREDNISONE. [Concomitant]
     Active Substance: PREDNISONE
  15. DEXAMETHASONE. [Concomitant]
     Active Substance: DEXAMETHASONE

REACTIONS (1)
  - Blood creatinine increased [Recovered/Resolved]

NARRATIVE: CASE EVENT DATE: 20140227
